FAERS Safety Report 5946557-0 (Version None)
Quarter: 2008Q4

REPORT INFORMATION
  Report Type: 
  Country: None (occurrence: None)
  Receive Date: 20081110
  Receipt Date: 20081031
  Transmission Date: 20090506
  Serious: Yes (Other)
  Sender: FDA-Public Use
  Company Number: B0545545A

PATIENT
  Sex: Male

DRUGS (5)
  1. KIVEXA [Suspect]
     Indication: HIV INFECTION
     Dates: start: 20050924, end: 20051231
  2. NORVIR [Suspect]
     Indication: HIV INFECTION
     Dates: start: 20050924, end: 20051231
  3. REYATAZ [Suspect]
     Indication: HIV INFECTION
     Dates: start: 20050924, end: 20051231
  4. COMBIVIR [Concomitant]
     Dates: start: 20051231
  5. TELZIR [Concomitant]
     Dates: start: 20080415

REACTIONS (2)
  - HYPERBILIRUBINAEMIA [None]
  - LIPODYSTROPHY ACQUIRED [None]
